FAERS Safety Report 26193991 (Version 1)
Quarter: 2025Q4

REPORT INFORMATION
  Report Type: Spontaneous
  Country: EU (occurrence: EU)
  Receive Date: 20251224
  Receipt Date: 20251224
  Transmission Date: 20260118
  Serious: Yes (Hospitalization)
  Sender: TEVA
  Company Number: None

PATIENT
  Age: 30 Year
  Sex: Female

DRUGS (3)
  1. IBUPROFEN [Suspect]
     Active Substance: IBUPROFEN
     Indication: Drug abuse
     Route: 048
     Dates: start: 20251129, end: 20251129
  2. MEDROL [Suspect]
     Active Substance: METHYLPREDNISOLONE
     Indication: Drug abuse
     Route: 048
     Dates: start: 20251129, end: 20251129
  3. VOLTAREN [Suspect]
     Active Substance: DICLOFENAC SODIUM
     Indication: Drug abuse
     Route: 048
     Dates: start: 20251129, end: 20251129

REACTIONS (3)
  - Antisocial behaviour [Not Recovered/Not Resolved]
  - Intentional overdose [Not Recovered/Not Resolved]
  - Drug abuse [Not Recovered/Not Resolved]

NARRATIVE: CASE EVENT DATE: 20251129
